FAERS Safety Report 7269206-0 (Version None)
Quarter: 2011Q1

REPORT INFORMATION
  Report Type: 
  Country: None (occurrence: None)
  Receive Date: 20110202
  Receipt Date: 20110118
  Transmission Date: 20110831
  Serious: Yes (Hospitalization, Other)
  Sender: FDA-Public Use
  Company Number: US-ELI_LILLY_AND_COMPANY-US201011002365

PATIENT
  Sex: Female

DRUGS (10)
  1. TEMAZEPAM [Concomitant]
     Dosage: 30 MG, AT BED TIME
  2. GABAPENTIN [Concomitant]
     Dosage: 300 MG, 3/D
  3. OXYCODONE HCL [Concomitant]
     Dosage: 5 MG, AS NEEDED
  4. PREDNISONE [Concomitant]
     Dosage: 10 MG, DAILY (1/D)
     Dates: start: 20110114
  5. SUCRALFATE [Concomitant]
     Dosage: 1 G, 3/D
  6. POTASSIUM CHLORIDE [Concomitant]
     Dosage: 20 MEQ, DAILY (1/D)
     Dates: start: 20110114
  7. FORTEO [Suspect]
     Indication: OSTEOPOROSIS
     Dosage: 20 UG, DAILY (1/D)
     Dates: start: 20100801, end: 20101214
  8. COMBIVENT [Concomitant]
     Dosage: 2 D/F, AS NEEDED
     Dates: start: 20100101
  9. IPRATROPIUM BROMIDE [Concomitant]
     Dosage: 360 D/F, 4/D
     Dates: start: 20110118
  10. FUROSEMIDE [Concomitant]
     Dosage: 40 MG, DAILY (1/D)
     Dates: start: 20101214

REACTIONS (3)
  - ATRIAL FIBRILLATION [None]
  - PNEUMONIA [None]
  - HAIR GROWTH ABNORMAL [None]
